FAERS Safety Report 5913132-3 (Version None)
Quarter: 2008Q4

REPORT INFORMATION
  Report Type: 
  Country: None (occurrence: None)
  Receive Date: 20081006
  Receipt Date: 20080923
  Transmission Date: 20090506
  Serious: Yes (Hospitalization)
  Sender: FDA-Public Use
  Company Number: 2007BI023109

PATIENT
  Age: 54 Year
  Sex: Female

DRUGS (4)
  1. AVONEX [Suspect]
     Indication: MULTIPLE SCLEROSIS
     Dosage: 30 UG; QW; IM
     Route: 030
     Dates: start: 19980601, end: 19990719
  2. AVONEX [Suspect]
     Indication: MULTIPLE SCLEROSIS
     Dosage: 30 UG; QW; IM
     Route: 030
     Dates: start: 20040526
  3. CON. MEDS [Concomitant]
  4. PREV MEDS [Concomitant]

REACTIONS (8)
  - ACCIDENT [None]
  - FALL [None]
  - FAT EMBOLISM [None]
  - HEART RATE IRREGULAR [None]
  - HIP FRACTURE [None]
  - LOWER LIMB FRACTURE [None]
  - LUNG DISORDER [None]
  - PULMONARY EMBOLISM [None]
